FAERS Safety Report 9669187 (Version 1)
Quarter: 2013Q4

REPORT INFORMATION
  Report Type: Spontaneous
  Country: US (occurrence: None)
  Receive Date: 20131104
  Receipt Date: 20131104
  Transmission Date: 20140711
  Serious: Yes (Other)
  Sender: FDA-Public Use
  Company Number: None

PATIENT
  Age: 51 Year
  Sex: Male
  Weight: 68.04 kg

DRUGS (1)
  1. TIROSINT [Suspect]
     Indication: HYPOTHYROIDISM
     Route: 048
     Dates: start: 20131018, end: 20131022

REACTIONS (2)
  - Respiratory tract irritation [None]
  - Reaction to drug excipients [None]
